FAERS Safety Report 4917243-0 (Version None)
Quarter: 2006Q1

REPORT INFORMATION
  Report Type: 
  Country: None (occurrence: None)
  Receive Date: 20060221
  Receipt Date: 20051017
  Transmission Date: 20060701
  Serious: Yes (Hospitalization, Disabling, Other)
  Sender: FDA-Public Use
  Company Number: US-MERCK-0510USA07828

PATIENT
  Age: 41 Year
  Sex: Male
  Weight: 88 kg

DRUGS (8)
  1. VIOXX [Suspect]
     Indication: OSTEOARTHRITIS
     Route: 048
     Dates: start: 20010101, end: 20040701
  2. VIOXX [Suspect]
     Indication: PAIN
     Route: 048
     Dates: start: 20010101, end: 20040701
  3. VIOXX [Suspect]
     Route: 048
     Dates: start: 20010101, end: 20040701
  4. VIOXX [Suspect]
     Route: 048
     Dates: start: 20010101, end: 20040701
  5. INSULIN [Concomitant]
     Route: 065
  6. HYDROCHLOROTHIAZIDE [Concomitant]
     Route: 065
  7. BENAZEPRIL HYDROCHLORIDE [Concomitant]
     Indication: HYPERTENSION
     Route: 065
  8. LIPITOR [Concomitant]
     Indication: BLOOD CHOLESTEROL
     Route: 065
     Dates: start: 20040301

REACTIONS (16)
  - ADVERSE EVENT [None]
  - ANXIETY [None]
  - ANXIETY DISORDER [None]
  - BIPOLAR DISORDER [None]
  - BLOOD CHOLESTEROL INCREASED [None]
  - CARDIAC DISORDER [None]
  - CEREBROVASCULAR ACCIDENT [None]
  - CHEST PAIN [None]
  - DISABILITY [None]
  - DISTURBANCE IN ATTENTION [None]
  - HOSPITALISATION [None]
  - HYPERTENSION [None]
  - RENAL DISORDER [None]
  - RENAL INJURY [None]
  - SLEEP DISORDER [None]
  - TRANSIENT ISCHAEMIC ATTACK [None]
